FAERS Safety Report 8328131-4 (Version None)
Quarter: 2012Q2

REPORT INFORMATION
  Report Type: 
  Country: None (occurrence: None)
  Receive Date: 20120502
  Receipt Date: 20120427
  Transmission Date: 20120825
  Serious: Yes (Hospitalization)
  Sender: FDA-Public Use
  Company Number: PHHO2012GR006194

PATIENT
  Sex: Female
  Weight: 73 kg

DRUGS (4)
  1. EXJADE [Suspect]
     Indication: THALASSAEMIA
     Dosage: 30 MG, QD
     Route: 048
     Dates: start: 20120125, end: 20120403
  2. ZESTRIL [Concomitant]
     Indication: ARRHYTHMIA
     Dosage: 5 MG, QD
     Route: 048
     Dates: start: 20050413
  3. DESFERAL [Suspect]
     Indication: THALASSAEMIA BETA
     Dosage: 40 MG, QD
     Route: 058
     Dates: start: 20120125, end: 20120403
  4. CARVEDILOL [Concomitant]
     Indication: ARRHYTHMIA
     Dosage: 6.25 MG, BID
     Route: 048
     Dates: start: 20050413

REACTIONS (4)
  - ABDOMINAL DISCOMFORT [None]
  - DYSPNOEA [None]
  - FATIGUE [None]
  - CHEST PAIN [None]
